FAERS Safety Report 10027338 (Version 1)
Quarter: 2014Q1

REPORT INFORMATION
  Report Type: Spontaneous
  Country: GB (occurrence: GB)
  Receive Date: 20140321
  Receipt Date: 20140321
  Transmission Date: 20141002
  Serious: Yes (Other)
  Sender: FDA-Public Use
  Company Number: GB-009507513-1403GBR008870

PATIENT
  Sex: Female

DRUGS (1)
  1. NEXPLANON [Suspect]
     Dosage: UNK
     Route: 059
     Dates: start: 20140313

REACTIONS (4)
  - Postictal paralysis [Unknown]
  - Convulsion [Unknown]
  - Vomiting [Unknown]
  - Implant site haemorrhage [Unknown]
